FAERS Safety Report 14909712 (Version 5)
Quarter: 2018Q4

REPORT INFORMATION
  Report Type: Report from Study
  Country: CA (occurrence: CA)
  Receive Date: 20180517
  Receipt Date: 20181212
  Transmission Date: 20190204
  Serious: Yes (Other)
  Sender: FDA-Public Use
  Company Number: CA-GLAXOSMITHKLINE-CA2018086343

PATIENT
  Age: 74 Year
  Sex: Female

DRUGS (6)
  1. JAKAVI [Suspect]
     Active Substance: RUXOLITINIB
     Dosage: 15 MG, BID (2 TABLETS IN MORNING AND 1 TABLET IN EVENING)
     Route: 048
     Dates: start: 20170925
  2. JADENU [Suspect]
     Active Substance: DEFERASIROX
     Indication: IRON OVERLOAD
     Dosage: 720 MG, QD
     Route: 048
     Dates: start: 20180424
  3. DICLOFENAC SODIUM. [Suspect]
     Active Substance: DICLOFENAC SODIUM
     Indication: PAIN
     Dosage: UNK
     Route: 061
  4. EXJADE [Suspect]
     Active Substance: DEFERASIROX
     Indication: IRON OVERLOAD
     Dosage: 1500 MG, QD
     Route: 048
     Dates: start: 20160614, end: 201804
  5. DICLOFENAC SODIUM. [Suspect]
     Active Substance: DICLOFENAC SODIUM
     Indication: ARTHRITIS
  6. JAKAVI [Suspect]
     Active Substance: RUXOLITINIB
     Indication: MYELOFIBROSIS
     Dosage: 10 MG, BID
     Route: 048

REACTIONS (34)
  - Oedema peripheral [Unknown]
  - Restless legs syndrome [Unknown]
  - Dizziness [Unknown]
  - Platelet count decreased [Unknown]
  - Full blood count decreased [Unknown]
  - Blood cholesterol decreased [Unknown]
  - Mouth ulceration [Unknown]
  - Urinary tract infection [Unknown]
  - Abdominal distension [Unknown]
  - Serum ferritin increased [Unknown]
  - Fatigue [Recovering/Resolving]
  - Gastric hypertonia [Unknown]
  - Muscle spasms [Unknown]
  - Arthritis [Unknown]
  - Blood iron decreased [Unknown]
  - Burning sensation [Unknown]
  - Blood creatinine increased [Unknown]
  - Blood creatinine decreased [Unknown]
  - Pain [Unknown]
  - Weight increased [Unknown]
  - Platelet count increased [Unknown]
  - Muscle fatigue [Unknown]
  - Gait disturbance [Unknown]
  - Pain in extremity [Unknown]
  - Feeling abnormal [Unknown]
  - Constipation [Recovering/Resolving]
  - Haemoglobin decreased [Recovering/Resolving]
  - Red blood cell count decreased [Unknown]
  - Ligament sprain [Unknown]
  - White blood cell count increased [Unknown]
  - Sciatica [Unknown]
  - Asthenia [Unknown]
  - Bowel movement irregularity [Unknown]
  - Fall [Unknown]

NARRATIVE: CASE EVENT DATE: 20180504
